FAERS Safety Report 8068091-7 (Version None)
Quarter: 2012Q1

REPORT INFORMATION
  Report Type: 
  Country: None (occurrence: None)
  Receive Date: 20120124
  Receipt Date: 20110921
  Transmission Date: 20120608
  Serious: Yes (Other)
  Sender: FDA-Public Use
  Company Number: US-AMGEN-USASP2011048777

PATIENT
  Sex: Female

DRUGS (4)
  1. KLOR-CON [Concomitant]
  2. OSCAL                              /00108001/ [Concomitant]
  3. ASPIRIN [Concomitant]
  4. PROLIA [Suspect]
     Indication: OSTEOPOROSIS POSTMENOPAUSAL
     Dosage: 60 MG, Q6MO
     Dates: start: 20110301

REACTIONS (4)
  - PAIN OF SKIN [None]
  - HERPES ZOSTER [None]
  - RASH ERYTHEMATOUS [None]
  - POST HERPETIC NEURALGIA [None]
